FAERS Safety Report 6321728-2 (Version None)
Quarter: 2009Q3

REPORT INFORMATION
  Report Type: 
  Country: None (occurrence: None)
  Receive Date: 20090824
  Receipt Date: 20090816
  Transmission Date: 20100115
  Serious: Yes (Other)
  Sender: FDA-Public Use
  Company Number: US-AMGEN-QUU360502

PATIENT
  Sex: Male

DRUGS (1)
  1. ENBREL [Suspect]
     Indication: PSORIASIS
     Dates: start: 20090714

REACTIONS (4)
  - ABDOMINAL DISCOMFORT [None]
  - AFFECTIVE DISORDER [None]
  - DEPRESSION [None]
  - DYSPEPSIA [None]
